FAERS Safety Report 25451585 (Version 3)
Quarter: 2025Q3

REPORT INFORMATION
  Report Type: Spontaneous
  Country: CA (occurrence: CA)
  Receive Date: 20250618
  Receipt Date: 20250730
  Transmission Date: 20251021
  Serious: No
  Sender: PFIZER
  Company Number: CA-PFIZER INC-202500119629

PATIENT
  Sex: Female

DRUGS (2)
  1. FRAGMIN [Suspect]
     Active Substance: DALTEPARIN SODIUM
  2. FRAGMIN [Suspect]
     Active Substance: DALTEPARIN SODIUM

REACTIONS (4)
  - Needle issue [Unknown]
  - Device leakage [Unknown]
  - Device mechanical issue [Unknown]
  - Device defective [Unknown]
